FAERS Safety Report 9247658 (Version 1)
Quarter: 2013Q1

REPORT INFORMATION
  Report Type: Spontaneous
  Country: US (occurrence: None)
  Receive Date: 20121130
  Receipt Date: 20121130
  Transmission Date: 20140127
  Serious: Yes (Other)
  Sender: FDA-Public Use
  Company Number: 352051

PATIENT
  Age: 49 Year
  Sex: Female
  Weight: 64.9 kg

DRUGS (1)
  1. NOVOLOG MIX 70/30 [Suspect]
     Indication: TYPE 2 DIABETES MELLITUS
     Dosage: 50 U, BID, SUBCUTANEOUS
     Route: 058
     Dates: start: 201204

REACTIONS (2)
  - Blood glucose increased [None]
  - Malaise [None]
